FAERS Safety Report 8420343-4 (Version None)
Quarter: 2012Q2

REPORT INFORMATION
  Report Type: 
  Country: None (occurrence: None)
  Receive Date: 20120607
  Receipt Date: 20120601
  Transmission Date: 20120825
  Serious: Yes (Other)
  Sender: FDA-Public Use
  Company Number: PHHY2012BR047684

PATIENT
  Sex: Male
  Weight: 108 kg

DRUGS (5)
  1. ZETSIM [Concomitant]
     Indication: BLOOD CHOLESTEROL
     Dosage: 1 DF, DAILY
     Route: 048
  2. BUP [Concomitant]
     Indication: ANXIETY
     Dosage: 1 DF, DAILY
     Route: 048
  3. VASOPRIL [Concomitant]
     Indication: HYPERTENSION
     Dosage: 1 DF, BID
     Route: 048
  4. GENTEAL [Suspect]
     Indication: EYE LUBRICATION THERAPY
     Dosage: 1 DRP IN EACH EYE, QID
     Route: 047
  5. INDAPAMIDE [Concomitant]
     Indication: HYPERTENSION
     Dosage: 1 DF, EVERY 2 DAYS
     Route: 048

REACTIONS (1)
  - VISUAL IMPAIRMENT [None]
